FAERS Safety Report 16249529 (Version 1)
Quarter: 2019Q2

REPORT INFORMATION
  Report Type: Spontaneous
  Country: US (occurrence: US)
  Receive Date: 20190429
  Receipt Date: 20190429
  Transmission Date: 20190711
  Serious: No
  Sender: FDA-Public Use
  Company Number: US-TEVA-2019-US-1039332

PATIENT
  Sex: Female

DRUGS (1)
  1. FLUTICASONE PROPIONATE / SALMETEROL XINOFOATE,232 MCG / 14 MCG [Suspect]
     Active Substance: FLUTICASONE PROPIONATE\SALMETEROL XINAFOATE
     Dosage: FORM STRENGTH: FLUTICASONE PROPIONATE-232 MCG/SALMETEROL XINOFOATE-14 MCG
     Route: 065

REACTIONS (2)
  - Drug ineffective [Unknown]
  - Device issue [Unknown]
